FAERS Safety Report 6194942-7 (Version None)
Quarter: 2009Q2

REPORT INFORMATION
  Report Type: 
  Country: None (occurrence: None)
  Receive Date: 20090515
  Receipt Date: 20090515
  Transmission Date: 20091009
  Serious: Yes (Hospitalization)
  Sender: FDA-Public Use
  Company Number: None

PATIENT
  Sex: Female
  Weight: 33.5662 kg

DRUGS (2)
  1. SORAFENIB 200 MG BAYER [Suspect]
     Indication: BREAST CANCER METASTATIC
     Dosage: 200 MG TWICE DAILY PO
     Route: 048
     Dates: start: 20090429, end: 20090506
  2. VINORELBINE [Suspect]
     Dosage: 25MG/M2 WEEKLY X 3 IV
     Route: 042

REACTIONS (1)
  - FEBRILE NEUTROPENIA [None]
